FAERS Safety Report 4712507-8 (Version None)
Quarter: 2005Q3

REPORT INFORMATION
  Report Type: 
  Country: None (occurrence: None)
  Receive Date: 20050711
  Receipt Date: 20050628
  Transmission Date: 20060218
  Serious: Yes (Other)
  Sender: FDA-Public Use
  Company Number: 215777

PATIENT
  Age: 52 Year
  Sex: Female
  Weight: 121 kg

DRUGS (1)
  1. RAPTIVA [Suspect]
     Indication: PSORIASIS
     Dosage: 120 MG, 1 WEEK, SUBCUTANEOUS
     Route: 058
     Dates: start: 20040401

REACTIONS (2)
  - ANTINUCLEAR ANTIBODY POSITIVE [None]
  - DIABETES MELLITUS NON-INSULIN-DEPENDENT [None]
